FAERS Safety Report 21739041 (Version 4)
Quarter: 2024Q1

REPORT INFORMATION
  Report Type: Spontaneous
  Country: GB (occurrence: GB)
  Receive Date: 20221216
  Receipt Date: 20240312
  Transmission Date: 20240409
  Serious: Yes (Hospitalization, Other)
  Sender: FDA-Public Use
  Company Number: GB-MYLANLABS-2022M1051648

PATIENT
  Age: 46 Year
  Sex: Female

DRUGS (2)
  1. CLOZARIL [Suspect]
     Active Substance: CLOZAPINE
     Indication: Schizophrenia
     Dosage: UNK
     Route: 048
     Dates: start: 20070227, end: 20221209
  2. CLOZARIL [Suspect]
     Active Substance: CLOZAPINE
     Dosage: 500 MILLIGRAM
     Route: 048
     Dates: start: 20221223, end: 20221228

REACTIONS (10)
  - Mental disorder [Unknown]
  - Urosepsis [Unknown]
  - Pyelonephritis [Unknown]
  - COVID-19 [Unknown]
  - Pneumonia [Unknown]
  - Malaise [Unknown]
  - Hospitalisation [Unknown]
  - Thrombocytopenia [Unknown]
  - Dyspnoea [Unknown]
  - Drug titration error [Unknown]

NARRATIVE: CASE EVENT DATE: 20220706
